FAERS Safety Report 5049756-8 (Version None)
Quarter: 2006Q3

REPORT INFORMATION
  Report Type: 
  Country: None (occurrence: None)
  Receive Date: 20060706
  Receipt Date: 20060623
  Transmission Date: 20061208
  Serious: Yes (Hospitalization)
  Sender: FDA-Public Use
  Company Number: 2006PV016241

PATIENT
  Age: 60 Year
  Sex: Male
  Weight: 89.8122 kg

DRUGS (7)
  1. BYETTA [Suspect]
     Indication: DIABETES MELLITUS NON-INSULIN-DEPENDENT
     Dosage: 5 MCG; QD;SC
     Route: 058
     Dates: start: 20060111, end: 20060205
  2. BYETTA [Suspect]
     Indication: DIABETES MELLITUS NON-INSULIN-DEPENDENT
     Dosage: 5 MCG; QD;SC
     Route: 058
     Dates: start: 20060320, end: 20060514
  3. BYETTA [Suspect]
     Indication: DIABETES MELLITUS NON-INSULIN-DEPENDENT
     Dosage: 5 MCG; QD;SC
     Route: 058
     Dates: start: 20060515
  4. ACTOS [Concomitant]
  5. DIOVAN [Concomitant]
  6. ISOSORBIDE [Concomitant]
  7. LASIX [Concomitant]

REACTIONS (9)
  - ARTHRITIS [None]
  - CHEST PAIN [None]
  - CONDITION AGGRAVATED [None]
  - DECREASED APPETITE [None]
  - HYPERTENSION [None]
  - NAUSEA [None]
  - SINUS TACHYCARDIA [None]
  - THERAPEUTIC RESPONSE UNEXPECTED [None]
  - WEIGHT DECREASED [None]
